FAERS Safety Report 9636207 (Version 2)
Quarter: 2013Q4

REPORT INFORMATION
  Report Type: Spontaneous
  Country: ES (occurrence: ES)
  Receive Date: 20131021
  Receipt Date: 20131104
  Transmission Date: 20140711
  Serious: Yes (Hospitalization, Other)
  Sender: FDA-Public Use
  Company Number: ES-PFIZER INC-2013295887

PATIENT
  Age: 78 Year
  Sex: Female

DRUGS (7)
  1. TOVIAZ [Suspect]
     Indication: INCONTINENCE
     Dosage: UNK
     Route: 048
     Dates: start: 20071203, end: 20130219
  2. CITRAFLEET [Interacting]
     Indication: COLONOSCOPY
     Dosage: UNK
     Route: 048
     Dates: start: 20130218, end: 20130219
  3. PARAPRES PLUS [Interacting]
     Indication: HYPERTENSION
     Dosage: 1 DF, 1X/DAY (32 MG/ 12.5 MG)
     Route: 048
     Dates: start: 20130206, end: 20130219
  4. PLANTABEN [Interacting]
     Indication: CONSTIPATION
     Dosage: UNK
     Route: 048
     Dates: start: 20120629, end: 20130219
  5. ACTONEL [Concomitant]
     Indication: OSTEOPOROSIS
     Dosage: 35 MG, WEEKLY
     Route: 048
     Dates: start: 20100920
  6. EUTIROX [Concomitant]
     Indication: HYPOTHYROIDISM
     Dosage: 25 UG, 1X/DAY
     Route: 048
     Dates: start: 2003
  7. NATECAL D [Concomitant]
     Indication: HYPOVITAMINOSIS
     Dosage: 1 DF, 1X/DAY
     Route: 048
     Dates: start: 20091201

REACTIONS (7)
  - Status epilepticus [Recovered/Resolved]
  - Hyponatraemia [Recovered/Resolved]
  - Drug interaction [Recovered/Resolved]
  - Metabolic disorder [Unknown]
  - Leukoencephalopathy [Unknown]
  - Cerebral atrophy [Unknown]
  - White matter lesion [Unknown]
